FAERS Safety Report 7460424-5 (Version None)
Quarter: 2011Q2

REPORT INFORMATION
  Report Type: 
  Country: None (occurrence: None)
  Receive Date: 20110505
  Receipt Date: 20110427
  Transmission Date: 20111010
  Serious: Yes (Death, Disabling)
  Sender: FDA-Public Use
  Company Number: B0714895A

PATIENT
  Sex: Male
  Weight: 10 kg

DRUGS (11)
  1. VEPESID [Suspect]
     Indication: STEM CELL TRANSPLANT
     Dosage: 300MGM2 PER DAY
     Route: 042
     Dates: start: 20040630, end: 20040704
  2. FUNGIZONE [Suspect]
     Dosage: 50MG PER DAY
     Dates: start: 20040927
  3. CARBOPLATIN [Suspect]
     Indication: STEM CELL TRANSPLANT
     Dosage: 250MGM2 PER DAY
     Route: 042
     Dates: start: 20040630, end: 20040704
  4. KYTRIL [Concomitant]
     Dosage: 1MG PER DAY
     Route: 042
     Dates: end: 20040707
  5. URSO 250 [Concomitant]
     Dosage: 100MG PER DAY
     Route: 048
  6. ALKERAN [Suspect]
     Indication: STEM CELL TRANSPLANT
     Dosage: 100MGM2 PER DAY
     Route: 042
     Dates: start: 20040705, end: 20040706
  7. BIOFERMIN R [Concomitant]
     Dosage: 1G PER DAY
     Route: 048
  8. BAKTAR [Concomitant]
     Dosage: 1IUAX PER DAY
     Route: 048
  9. FUROSEMIDE [Concomitant]
     Dosage: 20MG PER DAY
     Route: 042
  10. DIFLUCAN [Concomitant]
     Dosage: 50MG PER DAY
     Route: 048
     Dates: end: 20040712
  11. ISODINE GARGLE [Concomitant]
     Route: 002
     Dates: end: 20040929

REACTIONS (8)
  - ASPERGILLOSIS [None]
  - RENAL DISORDER [None]
  - BLOOD CREATININE INCREASED [None]
  - BLOOD UREA INCREASED [None]
  - CARDIAC FAILURE [None]
  - BLOOD BETA-D-GLUCAN INCREASED [None]
  - ADENOVIRUS INFECTION [None]
  - C-REACTIVE PROTEIN INCREASED [None]
